FAERS Safety Report 12639735 (Version 2)
Quarter: 2016Q3

REPORT INFORMATION
  Report Type: Spontaneous
  Country: FR (occurrence: FR)
  Receive Date: 20160810
  Receipt Date: 20160812
  Transmission Date: 20161109
  Serious: Yes (Other)
  Sender: FDA-Public Use
  Company Number: FR-009507513-1608FRA005024

PATIENT
  Sex: Male

DRUGS (14)
  1. BISOCOR [Concomitant]
     Active Substance: BISOPROLOL FUMARATE
     Dosage: 2.5 (UNIT NOT PROVIDED), FREQUENCY UNKNOWN
  2. ALLOPURINOL. [Concomitant]
     Active Substance: ALLOPURINOL
     Dosage: 200 (UNIT NOT PROVIDED), FREQUENCY UNKNOWN
  3. KAYEXALATE [Concomitant]
     Active Substance: SODIUM POLYSTYRENE SULFONATE
     Dosage: 1 DOSAGE FORM/3 DAY
  4. OMEXEL [Concomitant]
     Active Substance: TAMSULOSIN HYDROCHLORIDE
     Dosage: 10 (UNITS NOT PROVIDED), FREQUENCY UNKNOWN
  5. LANSOPRAZOLE. [Concomitant]
     Active Substance: LANSOPRAZOLE
     Dosage: 15 (UNIT NOT PROVIDED), FREQUENCY UNKNOWN
  6. REBETOL [Suspect]
     Active Substance: RIBAVIRIN
     Indication: HEPATITIS C
     Dosage: UNK
     Route: 048
     Dates: start: 2007
  7. PRAVASTATIN. [Concomitant]
     Active Substance: PRAVASTATIN
     Dosage: 20 (UNIT NOT PROVIDED), FREQUENCY UNKNOWN
  8. PEGASYS [Suspect]
     Active Substance: PEGINTERFERON ALFA-2A
     Indication: HEPATITIS C
     Dosage: UNK
     Dates: start: 2007
  9. IRBESARTAN. [Concomitant]
     Active Substance: IRBESARTAN
     Dosage: 300 MG, UNK
  10. PREVISCAN [Concomitant]
     Active Substance: FLUINDIONE
     Dosage: 1 DOSAGE FORM PER DAY
  11. ADVAGRAF [Concomitant]
     Active Substance: TACROLIMUS
     Dosage: 1 MG, UNK
  12. AMLODIPINE [Concomitant]
     Active Substance: AMLODIPINE BESYLATE
     Dosage: 5 (UNIT NOT PROVIDED), FREQUENCY UNKNOWN
  13. CALCIUM CARBONATE (+) CHOLECALCIFEROL [Concomitant]
     Active Substance: CALCIUM CARBONATE\CHOLECALCIFEROL
     Dosage: 1 DF, FREQUENCY UNKNOWN
  14. ONEALFA [Concomitant]
     Active Substance: ALFACALCIDOL
     Dosage: 0.25 MICROGRAM, FREQUENCY UNKNOWN

REACTIONS (4)
  - Therapy non-responder [Unknown]
  - Renal failure [Unknown]
  - Atrial fibrillation [Unknown]
  - Thrombotic microangiopathy [Unknown]
